FAERS Safety Report 8119040-4 (Version None)
Quarter: 2012Q1

REPORT INFORMATION
  Report Type: 
  Country: None (occurrence: None)
  Receive Date: 20120207
  Receipt Date: 20120127
  Transmission Date: 20120608
  Serious: Yes (Other)
  Sender: FDA-Public Use
  Company Number: US-SANOFI-AVENTIS-2012SA006658

PATIENT

DRUGS (4)
  1. THERAPEUTIC RADIOPHARMACEUTICALS [Suspect]
     Dosage: STARTED FROM TENTH WEEK ONWARDS
     Route: 065
  2. CISPLATIN [Concomitant]
     Dosage: GIVEN OVER 2 HOURS ON DAY 1 OF EVERY CYCLE.
  3. DOCETAXEL [Suspect]
     Dosage: RECEIVED OVER 1 HOUR, TOTAL OF 3 CYCLES
     Route: 042
  4. DOCETAXEL [Suspect]
     Dosage: STARTED FROM TENTH WEEK OF TREATMENT
     Route: 042

REACTIONS (1)
  - AMPUTATION [None]
